FAERS Safety Report 16382907 (Version 1)
Quarter: 2019Q2

REPORT INFORMATION
  Report Type: Spontaneous
  Country: US (occurrence: US)
  Receive Date: 20190603
  Receipt Date: 20190603
  Transmission Date: 20190711
  Serious: No
  Sender: FDA-Public Use
  Company Number: PHEH2019US023178

PATIENT
  Sex: Female

DRUGS (1)
  1. LATANOPROST. [Suspect]
     Active Substance: LATANOPROST
     Indication: PRODUCT USED FOR UNKNOWN INDICATION
     Route: 047

REACTIONS (6)
  - Vision blurred [Unknown]
  - Erythema of eyelid [Unknown]
  - Nasal oedema [Unknown]
  - Nasal congestion [Unknown]
  - Eye colour change [Unknown]
  - Eye discharge [Unknown]
